FAERS Safety Report 12137564 (Version 2)
Quarter: 2017Q1

REPORT INFORMATION
  Report Type: Spontaneous
  Country: US (occurrence: US)
  Receive Date: 20160302
  Receipt Date: 20170213
  Transmission Date: 20170428
  Serious: No
  Sender: FDA-Public Use
  Company Number: US-ENDO PHARMACEUTICALS INC-2015SCPR015032

PATIENT

DRUGS (8)
  1. PREMARIN [Concomitant]
     Active Substance: ESTROGENS, CONJUGATED
     Indication: MENOPAUSAL DISORDER
     Dosage: UNK UNK, BIWEEKLY
     Route: 067
  2. NASCOBAL [Suspect]
     Active Substance: CYANOCOBALAMIN
     Dosage: 1 SPR, WEEKLY, ON ONE NOSTRIL
     Route: 045
     Dates: start: 201512
  3. NASCOBAL [Suspect]
     Active Substance: CYANOCOBALAMIN
     Dosage: 1 SPR, WEEKLY, ON ONE NOSTRIL
     Route: 045
     Dates: start: 2015
  4. NASCOBAL [Suspect]
     Active Substance: CYANOCOBALAMIN
     Dosage: UNK UNK, UNKNOWN
     Route: 065
  5. RHINOCORT AQUA [Concomitant]
     Active Substance: BUDESONIDE
     Indication: SEASONAL ALLERGY
     Dosage: 1 SPR, PRN, PER NOSTRIL
     Route: 045
  6. NASCOBAL [Suspect]
     Active Substance: CYANOCOBALAMIN
     Indication: SUPPLEMENTATION THERAPY
     Dosage: 1 SPR, WEEKLY, ON ONE NOSTRIL
     Route: 045
     Dates: start: 201508
  7. NASCOBAL [Suspect]
     Active Substance: CYANOCOBALAMIN
     Dosage: 1 SPRAY WEEKLY
     Route: 045
  8. NASCOBAL [Suspect]
     Active Substance: CYANOCOBALAMIN
     Dosage: UNK UNK, UNKNOWN
     Route: 065

REACTIONS (5)
  - Underdose [Unknown]
  - Drug ineffective [Unknown]
  - Vitamin B12 decreased [Unknown]
  - Product quality issue [Unknown]
  - Pain in extremity [Unknown]

NARRATIVE: CASE EVENT DATE: 2015
